FAERS Safety Report 20828506 (Version 2)
Quarter: 2022Q2

REPORT INFORMATION
  Report Type: Spontaneous
  Country: US (occurrence: US)
  Receive Date: 20220513
  Receipt Date: 20220520
  Transmission Date: 20220720
  Serious: No
  Sender: FDA-Public Use
  Company Number: US-SA-SAC20220505001619

PATIENT
  Age: 49 Year
  Sex: Female

DRUGS (12)
  1. DUPIXENT [Suspect]
     Active Substance: DUPILUMAB
     Indication: Dermatitis atopic
     Dosage: 300 MG, QOW
     Route: 058
     Dates: start: 20220418
  2. DUPIXENT [Suspect]
     Active Substance: DUPILUMAB
     Indication: Pruritus
  3. METHOTREXATE [Concomitant]
     Active Substance: METHOTREXATE
     Dosage: UNK
  4. TRIAMCINOLONE ACETONIDE [Concomitant]
     Active Substance: TRIAMCINOLONE ACETONIDE
  5. CLOBETASOL [Concomitant]
     Active Substance: CLOBETASOL
  6. PROTOPIC [Concomitant]
     Active Substance: TACROLIMUS
  7. ADVIL [Concomitant]
     Active Substance: IBUPROFEN
  8. VENTOLIN HFA [Concomitant]
     Active Substance: ALBUTEROL SULFATE
  9. HUMIRA [Concomitant]
     Active Substance: ADALIMUMAB
  10. BENADRYL [Concomitant]
     Active Substance: DIPHENHYDRAMINE HYDROCHLORIDE
  11. FLUOCINONIDE [Concomitant]
     Active Substance: FLUOCINONIDE
  12. LINZESS [Concomitant]
     Active Substance: LINACLOTIDE

REACTIONS (16)
  - Ear pain [Unknown]
  - Pharyngeal swelling [Unknown]
  - Sleep disorder [Unknown]
  - Neoplasm skin [Unknown]
  - Skin fissures [Unknown]
  - Nasal dryness [Unknown]
  - Rhinalgia [Unknown]
  - Blister [Unknown]
  - Temporomandibular joint syndrome [Unknown]
  - Swelling face [Unknown]
  - Erythema [Unknown]
  - Rhinorrhoea [Unknown]
  - Nasal obstruction [Unknown]
  - Skin burning sensation [Unknown]
  - Rash [Unknown]
  - Product use in unapproved indication [Unknown]

NARRATIVE: CASE EVENT DATE: 20220401
